FAERS Safety Report 12147838 (Version 3)
Quarter: 2017Q1

REPORT INFORMATION
  Report Type: Spontaneous
  Country: FR (occurrence: FR)
  Receive Date: 20160304
  Receipt Date: 20170123
  Transmission Date: 20170428
  Serious: Yes (Disabling, Congenital Anomaly)
  Sender: FDA-Public Use
  Company Number: FR-ABBVIE-16P-056-1574968-00

PATIENT
  Sex: Female

DRUGS (1)
  1. DEPAKINE [Suspect]
     Active Substance: VALPROATE SODIUM
     Indication: MATERNAL EXPOSURE TIMING UNSPECIFIED
     Route: 064

REACTIONS (10)
  - Foetal exposure during pregnancy [Unknown]
  - Auditory disorder [Unknown]
  - Dysmorphism [Unknown]
  - Intellectual disability [Unknown]
  - Osteochondritis [Unknown]
  - Ill-defined disorder [Unknown]
  - Disturbance in attention [Unknown]
  - Foetal anticonvulsant syndrome [Unknown]
  - Congenital hand malformation [Unknown]
  - Scoliosis [Unknown]

NARRATIVE: CASE EVENT DATE: 201506
